FAERS Safety Report 15479136 (Version 3)
Quarter: 2018Q4

REPORT INFORMATION
  Report Type: Report from Study
  Country: HK (occurrence: HK)
  Receive Date: 20181009
  Receipt Date: 20181228
  Transmission Date: 20190205
  Serious: Yes (Other)
  Sender: FDA-Public Use
  Company Number: HK-PFIZER INC-2018404623

PATIENT
  Sex: Female

DRUGS (6)
  1. PREDNISOLONE. [Concomitant]
     Active Substance: PREDNISOLONE
     Indication: IMMUNOSUPPRESSION
  2. SIROLIMUS. [Suspect]
     Active Substance: SIROLIMUS
     Indication: DRUG INTOLERANCE
     Dosage: 1 MG, DAILY (MEAN ACHIEVED SIROLIMUS DOSAGE, 2.0 +/- 0.0 MG/DAY AT THE TIME OF DISCONTINUATION)
  3. DILTIAZEM. [Concomitant]
     Active Substance: DILTIAZEM
     Dosage: UNK
  4. SIROLIMUS. [Suspect]
     Active Substance: SIROLIMUS
     Indication: LUPUS NEPHRITIS
  5. SIROLIMUS. [Suspect]
     Active Substance: SIROLIMUS
     Indication: IMMUNOSUPPRESSION
  6. PREDNISOLONE. [Concomitant]
     Active Substance: PREDNISOLONE
     Indication: LUPUS NEPHRITIS
     Dosage: 40 MG, DAILY (LOW-DOSE)
     Route: 048

REACTIONS (2)
  - Pancytopenia [Recovered/Resolved]
  - Cholecystitis acute [Unknown]
